FAERS Safety Report 26160589 (Version 1)
Quarter: 2025Q4

REPORT INFORMATION
  Report Type: Report from Study
  Country: ZA (occurrence: ZA)
  Receive Date: 20251216
  Receipt Date: 20251216
  Transmission Date: 20260119
  Serious: Yes (Other)
  Sender: ROCHE
  Company Number: ZA-ROCHE-10000153132

PATIENT
  Sex: Male

DRUGS (2)
  1. VABYSMO [Suspect]
     Active Substance: FARICIMAB-SVOA
     Indication: Macular degeneration
     Dosage: 24 APRIL 2025?05 JUNE 2025 ( 6 WEEKS )
  2. VABYSMO [Suspect]
     Active Substance: FARICIMAB-SVOA
     Dosage: 24 APRIL 2025?05 JUNE 2025 ( 6 WEEKS )

REACTIONS (3)
  - Visual acuity reduced [Unknown]
  - Retinal thickening [Unknown]
  - Off label use [Unknown]
